FAERS Safety Report 7408104-6 (Version None)
Quarter: 2011Q2

REPORT INFORMATION
  Report Type: 
  Country: None (occurrence: None)
  Receive Date: 20110412
  Receipt Date: 20110401
  Transmission Date: 20111010
  Serious: Yes (Hospitalization)
  Sender: FDA-Public Use
  Company Number: DE-SANOFI-AVENTIS-2011SA020457

PATIENT
  Age: 77 Year
  Sex: Male

DRUGS (5)
  1. INVESTIGATIONAL DRUG [Suspect]
     Indication: THROMBOSIS PROPHYLAXIS
     Route: 048
     Dates: start: 20090901, end: 20090911
  2. WARFARIN [Suspect]
     Indication: THROMBOSIS PROPHYLAXIS
     Route: 048
     Dates: start: 20090828, end: 20090910
  3. LOVENOX [Suspect]
     Route: 065
     Dates: start: 20100603, end: 20100627
  4. PHENPROCOUMON [Concomitant]
     Dates: start: 20090101, end: 20100602
  5. PLACEBO [Suspect]
     Indication: THROMBOSIS PROPHYLAXIS
     Route: 048
     Dates: start: 20090101, end: 20090901

REACTIONS (2)
  - INGUINAL HERNIA [None]
  - HAEMATOMA [None]
